FAERS Safety Report 10341146 (Version 3)
Quarter: 2014Q3

REPORT INFORMATION
  Report Type: Report from Study
  Country: US (occurrence: US)
  Receive Date: 20140724
  Receipt Date: 20140827
  Transmission Date: 20150326
  Serious: Yes (Other)
  Sender: FDA-Public Use
  Company Number: PHEH2014US006372

PATIENT
  Age: 40 Year
  Sex: Female
  Weight: 104.31 kg

DRUGS (1)
  1. GILENYA [Suspect]
     Active Substance: FINGOLIMOD HYDROCHLORIDE
     Indication: MULTIPLE SCLEROSIS
     Dosage: 0.5 MG, QD
     Route: 048
     Dates: start: 20140328

REACTIONS (10)
  - Neck pain [Recovered/Resolved]
  - Anxiety [Recovered/Resolved]
  - Muscle twitching [Not Recovered/Not Resolved]
  - Blepharospasm [Not Recovered/Not Resolved]
  - Convulsion [Not Recovered/Not Resolved]
  - Sunburn [Recovering/Resolving]
  - Skin exfoliation [Recovering/Resolving]
  - Myalgia [Unknown]
  - Pain in extremity [Not Recovered/Not Resolved]
  - Arthralgia [Unknown]

NARRATIVE: CASE EVENT DATE: 20140328
